FAERS Safety Report 16679704 (Version 7)
Quarter: 2020Q3

REPORT INFORMATION
  Report Type: Report from Study
  Country: US (occurrence: US)
  Receive Date: 20190807
  Receipt Date: 20200930
  Transmission Date: 20201102
  Serious: Yes (Death, Hospitalization, Other)
  Sender: FDA-Public Use
  Company Number: PHEH2019US031727

PATIENT
  Age: 68 Year
  Sex: Male
  Weight: 81.9 kg

DRUGS (23)
  1. COMPAZINE [Concomitant]
     Active Substance: PROCHLORPERAZINE MALEATE
     Indication: PRODUCT USED FOR UNKNOWN INDICATION
     Dosage: 10 MG, PRN
     Route: 065
  2. FLUDARABINE [Concomitant]
     Active Substance: FLUDARABINE PHOSPHATE
     Indication: CHEMOTHERAPY
     Route: 065
  3. VITAMIN D3 [Concomitant]
     Active Substance: CHOLECALCIFEROL
     Indication: PRODUCT USED FOR UNKNOWN INDICATION
     Dosage: 2000 U, QD
     Route: 065
  4. LIDOCAINE. [Concomitant]
     Active Substance: LIDOCAINE
     Indication: PRODUCT USED FOR UNKNOWN INDICATION
     Route: 065
  5. HYDROMORPHONE [Concomitant]
     Active Substance: HYDROMORPHONE
     Indication: PAIN
     Dosage: 2 MG, UNK (EVERY 4 PRN)
     Route: 065
  6. DEXLANSOPRAZOLE [Concomitant]
     Active Substance: DEXLANSOPRAZOLE
     Indication: PRODUCT USED FOR UNKNOWN INDICATION
     Dosage: 60 MG, QD
     Route: 065
  7. BACTRIM [Concomitant]
     Active Substance: SULFAMETHOXAZOLE\TRIMETHOPRIM
     Indication: PRODUCT USED FOR UNKNOWN INDICATION
     Dosage: 800?160 MG
     Route: 065
  8. REGADENOSON [Concomitant]
     Active Substance: REGADENOSON
     Indication: SCAN MYOCARDIAL PERFUSION
     Dosage: 0.4 MG, UNK
     Route: 065
  9. KYMRIAH [Suspect]
     Active Substance: TISAGENLECLEUCEL
     Indication: DIFFUSE LARGE B-CELL LYMPHOMA
     Dosage: 2.0 X108 CAR?T POSITIVE CELLS, ONCE/SINGLE
     Route: 042
     Dates: start: 20190708
  10. VITAMINE C [Concomitant]
     Active Substance: ASCORBIC ACID
     Indication: PRODUCT USED FOR UNKNOWN INDICATION
     Dosage: 500 MG, TID
     Route: 065
  11. VITAMIN B12 [Concomitant]
     Active Substance: CYANOCOBALAMIN
     Indication: PRODUCT USED FOR UNKNOWN INDICATION
     Dosage: 1000 UG, QD
     Route: 065
  12. OXYBUTIN [Concomitant]
     Active Substance: OXYBUTYNIN
     Indication: PRODUCT USED FOR UNKNOWN INDICATION
     Dosage: 5 MG, TID
     Route: 065
  13. DULCOLAX NOS [Concomitant]
     Active Substance: BISACODYL OR DOCUSATE SODIUM
     Indication: CONSTIPATION
     Dosage: 5 MG, QD (PRN)
     Route: 065
  14. TUMS [Concomitant]
     Active Substance: CALCIUM CARBONATE
     Indication: PRODUCT USED FOR UNKNOWN INDICATION
     Dosage: 750 MG, QD
     Route: 065
  15. MIRALAX [Concomitant]
     Active Substance: POLYETHYLENE GLYCOL 3350
     Indication: PRODUCT USED FOR UNKNOWN INDICATION
     Route: 065
  16. GADOLINIUM [Concomitant]
     Active Substance: GADOLINIUM
     Indication: MAGNETIC RESONANCE IMAGING
     Dosage: UNK
     Route: 065
  17. FLUCONAZOLE. [Concomitant]
     Active Substance: FLUCONAZOLE
     Indication: PRODUCT USED FOR UNKNOWN INDICATION
     Dosage: 400 MG, QD
     Route: 065
  18. ACYCLOVIR. [Concomitant]
     Active Substance: ACYCLOVIR
     Indication: PRODUCT USED FOR UNKNOWN INDICATION
     Dosage: 400 UNK, BID
     Route: 048
  19. GABAPENTIN. [Concomitant]
     Active Substance: GABAPENTIN
     Indication: PRODUCT USED FOR UNKNOWN INDICATION
     Dosage: 600 MG, TID
     Route: 048
  20. OXYCODONE [Concomitant]
     Active Substance: OXYCODONE
     Indication: PRODUCT USED FOR UNKNOWN INDICATION
     Dosage: 18 MG, BID
     Route: 065
  21. FLOMAX [Concomitant]
     Active Substance: TAMSULOSIN HYDROCHLORIDE
     Indication: PRODUCT USED FOR UNKNOWN INDICATION
     Dosage: 0.4 MG, QD
     Route: 065
  22. SENOKOT [Concomitant]
     Active Substance: SENNOSIDES
     Indication: PRODUCT USED FOR UNKNOWN INDICATION
     Dosage: 8.6 MG, BID
     Route: 065
  23. CYCLOPHOSPHAMIDE. [Concomitant]
     Active Substance: CYCLOPHOSPHAMIDE
     Indication: CHEMOTHERAPY
     Route: 065

REACTIONS (50)
  - Diffuse large B-cell lymphoma [Fatal]
  - Hypotension [Unknown]
  - Blood glucose increased [Unknown]
  - Protein total decreased [Unknown]
  - Mean cell haemoglobin increased [Unknown]
  - Blood alkaline phosphatase increased [Unknown]
  - Hypoxia [Unknown]
  - Haemorrhage [Unknown]
  - Haematocrit decreased [Unknown]
  - Prothrombin time prolonged [Unknown]
  - Blood albumin decreased [Unknown]
  - Cytokine release syndrome [Recovered/Resolved]
  - Blood lactate dehydrogenase increased [Recovered/Resolved]
  - Mitral valve incompetence [Unknown]
  - Haematoma [Unknown]
  - Neurotoxicity [Recovered/Resolved]
  - Blood calcium decreased [Unknown]
  - Red blood cell count decreased [Unknown]
  - Mean cell volume increased [Unknown]
  - Tachycardia [Unknown]
  - Immune effector cell-associated neurotoxicity syndrome [Recovered/Resolved]
  - Pulmonary oedema [Unknown]
  - Haemoglobin decreased [Unknown]
  - Leukoencephalopathy [Unknown]
  - Hepatomegaly [Unknown]
  - Platelet count decreased [Unknown]
  - Malignant neoplasm progression [Fatal]
  - Ventricular hypokinesia [Unknown]
  - Ejection fraction decreased [Unknown]
  - Hypogammaglobulinaemia [Unknown]
  - Blood potassium decreased [Unknown]
  - Aspartate aminotransferase increased [Unknown]
  - Somnolence [Recovering/Resolving]
  - Aortic valve incompetence [Unknown]
  - Hydronephrosis [Unknown]
  - Chest pain [Unknown]
  - White blood cell count decreased [Unknown]
  - Pyrexia [Unknown]
  - Serum ferritin increased [Recovered/Resolved]
  - Confusional state [Recovering/Resolving]
  - Left ventricular dysfunction [Unknown]
  - Red cell distribution width increased [Unknown]
  - Abdominal pain [Unknown]
  - Pleural effusion [Unknown]
  - Blood fibrinogen decreased [Unknown]
  - Diffuse large B-cell lymphoma recurrent [Fatal]
  - Haemophagocytic lymphohistiocytosis [Recovered/Resolved]
  - Depressed level of consciousness [Unknown]
  - Mean platelet volume increased [Unknown]
  - Alanine aminotransferase increased [Unknown]

NARRATIVE: CASE EVENT DATE: 20190710
